FAERS Safety Report 5762723-1 (Version None)
Quarter: 2008Q2

REPORT INFORMATION
  Report Type: 
  Country: None (occurrence: None)
  Receive Date: 20080609
  Receipt Date: 20080604
  Transmission Date: 20081010
  Serious: Yes (Life-Threatening)
  Sender: FDA-Public Use
  Company Number: FR-ASTRAZENECA-2006CG01204

PATIENT
  Sex: Male
  Weight: 3.2 kg

DRUGS (4)
  1. XYLOCAINE [Suspect]
     Indication: LOCAL ANAESTHESIA
     Route: 064
     Dates: start: 20050201, end: 20050216
  2. ANTASOL [Suspect]
     Route: 064
     Dates: start: 20050215, end: 20050215
  3. PETHIDINE [Concomitant]
     Route: 064
     Dates: start: 20060215, end: 20060215
  4. NARCAN [Concomitant]
     Dates: start: 20050216, end: 20050216

REACTIONS (5)
  - APNOEA [None]
  - CONVULSION [None]
  - CYANOSIS [None]
  - HYPOTONIA [None]
  - MYDRIASIS [None]
